FAERS Safety Report 7466170-6 (Version None)
Quarter: 2011Q2

REPORT INFORMATION
  Report Type: 
  Country: None (occurrence: None)
  Receive Date: 20110509
  Receipt Date: 20110505
  Transmission Date: 20111010
  Serious: Yes (Life-Threatening, Hospitalization)
  Sender: FDA-Public Use
  Company Number: GXKR2011DE01607

PATIENT
  Sex: Female
  Weight: 53 kg

DRUGS (3)
  1. CARBOPLATIN [Suspect]
     Route: 042
  2. DEXAMETHASONE [Suspect]
     Route: 065
  3. KEVATRIL [Concomitant]
     Route: 065

REACTIONS (7)
  - DYSPNOEA [None]
  - RASH [None]
  - NAUSEA [None]
  - PALPITATIONS [None]
  - ANAPHYLACTIC REACTION [None]
  - HYPOTENSION [None]
  - PARAESTHESIA [None]
